FAERS Safety Report 5152032-6 (Version None)
Quarter: 2006Q4

REPORT INFORMATION
  Report Type: 
  Country: None (occurrence: None)
  Receive Date: 20061116
  Receipt Date: 20061101
  Transmission Date: 20070319
  Serious: Yes (Death)
  Sender: FDA-Public Use
  Company Number: US-BAYER-200616258BWH

PATIENT
  Age: 71 Year

DRUGS (2)
  1. TRASYLOL [Suspect]
     Indication: HEART VALVE OPERATION
     Dates: start: 20060101
  2. PROTAMINE SULFATE [Suspect]
     Indication: HEART VALVE OPERATION
     Dates: start: 20060101

REACTIONS (1)
  - CARDIAC ARREST [None]
